FAERS Safety Report 21244319 (Version 1)
Quarter: 2022Q3

REPORT INFORMATION
  Report Type: Spontaneous
  Country: US (occurrence: None)
  Receive Date: 20220822
  Receipt Date: 20220822
  Transmission Date: 20221027
  Serious: Yes (Other)
  Sender: FDA-Public Use
  Company Number: None

PATIENT
  Sex: Male

DRUGS (2)
  1. TESTOPEL [Suspect]
     Active Substance: TESTOSTERONE
     Indication: Testicular disorder
     Dosage: 75 MG ?? IMPLANT 12 PELLETS UNDER THE SKIN (SUBCUTANEOUS INJECTION) EVERY 3 MONTHS?
     Route: 058
     Dates: start: 20160325
  2. TESTOPEL [Suspect]
     Active Substance: TESTOSTERONE
     Dosage: OTHER QUANTITY : 12 PELLETS;?OTHER FREQUENCY : EVERY 3 MONTHS;?
     Route: 058
     Dates: start: 20160325

REACTIONS (2)
  - Contusion [None]
  - Skin cancer [None]
